FAERS Safety Report 21959932 (Version 1)
Quarter: 2023Q1

REPORT INFORMATION
  Report Type: Spontaneous
  Country: ES (occurrence: ES)
  Receive Date: 20230206
  Receipt Date: 20230206
  Transmission Date: 20230417
  Serious: Yes (Other)
  Sender: FDA-Public Use
  Company Number: None

PATIENT
  Age: 37 Year
  Sex: Female

DRUGS (3)
  1. TYSABRI [Suspect]
     Active Substance: NATALIZUMAB
     Indication: Relapsing-remitting multiple sclerosis
     Route: 050
     Dates: start: 20210819
  2. IBUPROFEN [Suspect]
     Active Substance: IBUPROFEN
     Indication: Bronchitis
     Dosage: MINT FLAVOR GRANULES FOR ORAL SOLUTION GENERIC PHARMACEUTICAL EQUIVALENT, 40 SACHETS
     Route: 050
     Dates: start: 20220331, end: 20220407
  3. AZITHROMYCIN [Concomitant]
     Active Substance: AZITHROMYCIN
     Indication: Bronchitis
     Route: 050
     Dates: start: 20220331, end: 20220403

REACTIONS (2)
  - Abortion spontaneous [Recovered/Resolved]
  - Maternal exposure during pregnancy [Recovered/Resolved]

NARRATIVE: CASE EVENT DATE: 20220301
